FAERS Safety Report 6722660-2 (Version None)
Quarter: 2010Q2

REPORT INFORMATION
  Report Type: 
  Country: None (occurrence: None)
  Receive Date: 20100512
  Receipt Date: 20100425
  Transmission Date: 20101027
  Serious: Yes (Other)
  Sender: FDA-Public Use
  Company Number: PHHY2010DZ30176

PATIENT
  Sex: Female

DRUGS (3)
  1. EXFORGE [Suspect]
     Indication: HYPERTENSION
     Dosage: 1 TABLET PER DAY
     Route: 048
     Dates: start: 20100321
  2. LESCOL XL [Concomitant]
  3. ASPIRIN [Concomitant]
     Dosage: 100 MG PER DAY

REACTIONS (6)
  - ASPHYXIA [None]
  - INSOMNIA [None]
  - JOINT SWELLING [None]
  - OROPHARYNGEAL DISCOMFORT [None]
  - PYREXIA [None]
  - SWELLING FACE [None]
